FAERS Safety Report 12495564 (Version 1)
Quarter: 2016Q2

REPORT INFORMATION
  Report Type: Spontaneous
  Country: US (occurrence: None)
  Receive Date: 20160623
  Receipt Date: 20160623
  Transmission Date: 20160815
  Serious: No
  Sender: FDA-Public Use
  Company Number: None

PATIENT
  Sex: Male

DRUGS (9)
  1. SIMVASTATIN. [Concomitant]
     Active Substance: SIMVASTATIN
  2. TASIGNA [Concomitant]
     Active Substance: NILOTINIB
  3. COUMADI [Concomitant]
  4. ASPIRIN. [Concomitant]
     Active Substance: ASPIRIN
  5. SUTENT [Suspect]
     Active Substance: SUNITINIB MALATE
     Indication: SOFT TISSUE SARCOMA
     Route: 048
     Dates: start: 20151217
  6. IRON [Concomitant]
     Active Substance: IRON
  7. METOPROLOL. [Concomitant]
     Active Substance: METOPROLOL
  8. LISINOPRIL. [Concomitant]
     Active Substance: LISINOPRIL
  9. NIASPAN [Concomitant]
     Active Substance: NIACIN

REACTIONS (2)
  - Platelet count decreased [None]
  - Therapy cessation [None]

NARRATIVE: CASE EVENT DATE: 2016
